FAERS Safety Report 17052713 (Version 1)
Quarter: 2019Q4

REPORT INFORMATION
  Report Type: Spontaneous
  Country: IT (occurrence: IT)
  Receive Date: 20191120
  Receipt Date: 20191120
  Transmission Date: 20200122
  Serious: Yes (Other)
  Sender: FDA-Public Use
  Company Number: NVSC2019IT039036

PATIENT
  Age: 24 Year
  Sex: Male

DRUGS (1)
  1. AMOXICILLINA E ACIDO CLAVULANICO SANDOZ [Suspect]
     Active Substance: AMOXICILLIN\CLAVULANATE POTASSIUM
     Indication: FURUNCLE
     Dosage: 1 G, BID
     Route: 065

REACTIONS (2)
  - Loss of consciousness [Unknown]
  - Rash [Unknown]
